FAERS Safety Report 8411953-9 (Version None)
Quarter: 2012Q2

REPORT INFORMATION
  Report Type: 
  Country: None (occurrence: None)
  Receive Date: 20120605
  Receipt Date: 20120516
  Transmission Date: 20120825
  Serious: No
  Sender: FDA-Public Use
  Company Number: US-AMGEN-USASP2012031003

PATIENT
  Age: 57 Year
  Sex: Female

DRUGS (1)
  1. ENBREL [Suspect]
     Indication: RHEUMATOID ARTHRITIS
     Dosage: 50 MG, QWK
     Dates: start: 20111221, end: 20120201

REACTIONS (8)
  - EAR INFECTION [None]
  - PAIN [None]
  - MASS [None]
  - EAR PAIN [None]
  - DRUG INEFFECTIVE [None]
  - EYELID INFECTION [None]
  - MADAROSIS [None]
  - SINUSITIS [None]
